FAERS Safety Report 9242851 (Version 1)
Quarter: 2013Q2

REPORT INFORMATION
  Report Type: Spontaneous
  Country: US (occurrence: US)
  Receive Date: 20130418
  Receipt Date: 20130418
  Transmission Date: 20140414
  Serious: No
  Sender: FDA-Public Use
  Company Number: US-SANOFI-AVENTIS-2012SA085176

PATIENT
  Age: 74 Year
  Sex: Male

DRUGS (4)
  1. LOVENOX [Suspect]
     Indication: PULMONARY THROMBOSIS
     Route: 065
     Dates: start: 20120324, end: 20120607
  2. WARFARIN [Concomitant]
  3. ELIGARD [Concomitant]
  4. CASODEX [Concomitant]

REACTIONS (3)
  - Urine flow decreased [Not Recovered/Not Resolved]
  - Dysuria [Not Recovered/Not Resolved]
  - Dysuria [Not Recovered/Not Resolved]
